FAERS Safety Report 6221336-8 (Version None)
Quarter: 2009Q2

REPORT INFORMATION
  Report Type: 
  Country: None (occurrence: None)
  Receive Date: 20090610
  Receipt Date: 20090515
  Transmission Date: 20091009
  Serious: No
  Sender: FDA-Public Use
  Company Number: US-BAYER-200911534BCC

PATIENT
  Age: 63 Year
  Sex: Female
  Weight: 64 kg

DRUGS (11)
  1. ALEVE (CAPLET) [Suspect]
     Indication: ARTHRALGIA
     Dosage: TOTAL DAILY DOSE: 440 MG  UNIT DOSE: 220 MG
     Route: 048
     Dates: start: 20090201, end: 20090512
  2. CALTRATE 600 PLUS [Concomitant]
     Dosage: UNK
     Route: 065
  3. GRIS-PEG [Concomitant]
     Dosage: UNK
     Route: 065
  4. RID YEAST RICE [Concomitant]
     Dosage: UNK
     Route: 065
  5. CENTRUM SILVER [Concomitant]
     Dosage: UNK
     Route: 065
  6. STRESSTABS ADVANCE [Concomitant]
     Dosage: UNK
     Route: 065
  7. COSAMIN ASU [Concomitant]
     Dosage: UNK
     Route: 065
  8. FLAXSEED OIL [Concomitant]
     Dosage: UNK
     Route: 065
  9. VITAMIN E [Concomitant]
     Dosage: UNK
     Route: 065
  10. COQ10 FISH OIL [Concomitant]
     Dosage: UNK
     Route: 065
  11. BORAGE OIL [Concomitant]
     Dosage: UNK
     Route: 065

REACTIONS (1)
  - PARAESTHESIA [None]
